FAERS Safety Report 8090855-4 (Version None)
Quarter: 2012Q1

REPORT INFORMATION
  Report Type: 
  Country: None (occurrence: None)
  Receive Date: 20120131
  Receipt Date: 20120119
  Transmission Date: 20120608
  Serious: Yes (Hospitalization)
  Sender: FDA-Public Use
  Company Number: IT-JNJFOC-20120109447

PATIENT
  Age: 47 Year
  Sex: Male

DRUGS (2)
  1. REMICADE [Suspect]
     Indication: SPONDYLOARTHROPATHY
     Route: 042
     Dates: start: 20030310, end: 20100401
  2. SYMBICORT [Concomitant]
     Indication: ASTHMA
     Route: 065
     Dates: start: 20100101

REACTIONS (5)
  - NODULE [None]
  - PERICARDIAL EFFUSION [None]
  - HYPERPYREXIA [None]
  - PLEURAL EFFUSION [None]
  - PARATRACHEAL LYMPHADENOPATHY [None]
